FAERS Safety Report 19318000 (Version 1)
Quarter: 2021Q2

REPORT INFORMATION
  Report Type: Spontaneous
  Country: US (occurrence: US)
  Receive Date: 20210527
  Receipt Date: 20210527
  Transmission Date: 20210717
  Serious: Yes (Other)
  Sender: FDA-Public Use
  Company Number: US-ROCHE-2836743

PATIENT
  Age: 28 Year
  Sex: Female

DRUGS (1)
  1. HEMLIBRA [Suspect]
     Active Substance: EMICIZUMAB-KXWH
     Indication: VON WILLEBRAND^S DISEASE
     Dosage: STRENGTH: 150MG/ML
     Route: 058
     Dates: start: 20210204

REACTIONS (2)
  - Cerebrospinal fluid leakage [Unknown]
  - Procedural haemorrhage [Unknown]

NARRATIVE: CASE EVENT DATE: 20210503
